FAERS Safety Report 7549291-9 (Version None)
Quarter: 2011Q2

REPORT INFORMATION
  Report Type: 
  Country: None (occurrence: None)
  Receive Date: 20110615
  Receipt Date: 20030313
  Transmission Date: 20111010
  Serious: Yes (Death, Hospitalization)
  Sender: FDA-Public Use
  Company Number: PHEH2003US00979

PATIENT
  Sex: Female

DRUGS (5)
  1. MYSOLINE [Concomitant]
  2. VIVACTIL [Concomitant]
  3. EXELON [Suspect]
     Indication: DEMENTIA ALZHEIMER'S TYPE
     Dosage: 3 MG, BID
     Route: 048
     Dates: start: 20020606
  4. VERAPAMIL [Concomitant]
  5. FLURAZEPAM [Concomitant]

REACTIONS (6)
  - SEPTIC SHOCK [None]
  - INTESTINAL OBSTRUCTION [None]
  - PNEUMONIA [None]
  - BACTERIAL DIARRHOEA [None]
  - ASTHENIA [None]
  - GAIT DISTURBANCE [None]
